FAERS Safety Report 6806422-3 (Version None)
Quarter: 2010Q2

REPORT INFORMATION
  Report Type: 
  Country: None (occurrence: None)
  Receive Date: 20100629
  Receipt Date: 20080206
  Transmission Date: 20101027
  Serious: Yes (Other)
  Sender: FDA-Public Use
  Company Number: US-PFIZER INC-2008011857

PATIENT
  Age: 57 Year
  Sex: Male
  Weight: 89.81 kg

DRUGS (4)
  1. XANAX [Suspect]
     Indication: ANXIETY
     Dosage: 2 MG TID EVERY DAY TDD:6 MG
     Route: 048
     Dates: start: 19970101
  2. XANAX [Suspect]
     Indication: PANIC ATTACK
  3. SYNTHROID [Concomitant]
  4. LOVASTATIN [Concomitant]

REACTIONS (6)
  - ANXIETY [None]
  - FATIGUE [None]
  - FEELING ABNORMAL [None]
  - INSOMNIA [None]
  - MALAISE [None]
  - WITHDRAWAL SYNDROME [None]
